FAERS Safety Report 7474587-9 (Version None)
Quarter: 2011Q2

REPORT INFORMATION
  Report Type: 
  Country: None (occurrence: None)
  Receive Date: 20110503
  Receipt Date: 20110419
  Transmission Date: 20111010
  Serious: Yes (Hospitalization)
  Sender: FDA-Public Use
  Company Number: 031426

PATIENT
  Sex: Female
  Weight: 56.6 kg

DRUGS (8)
  1. TRAMADOL HCL [Concomitant]
  2. FOLIC ACID [Concomitant]
  3. CIMZIA [Suspect]
     Indication: RHEUMATOID ARTHRITIS
     Dosage: (200 MG	1X/2 WEEKS SUBCUTANEOUS)
     Route: 058
     Dates: start: 20100909, end: 20110221
  4. CELECOXIB [Concomitant]
  5. METHOTREXATE [Concomitant]
  6. FAMOTIDINE [Concomitant]
  7. CEFACLOR [Concomitant]
  8. HYDROXYCHLOROQUINE SULFATE [Concomitant]

REACTIONS (5)
  - GASTRITIS ATROPHIC [None]
  - DRUG INEFFECTIVE [None]
  - HAEMOPTYSIS [None]
  - PULMONARY ARTERIOVENOUS FISTULA [None]
  - REFLUX GASTRITIS [None]
